FAERS Safety Report 18897419 (Version 1)
Quarter: 2021Q1

REPORT INFORMATION
  Report Type: Spontaneous
  Country: DE (occurrence: DE)
  Receive Date: 20210215
  Receipt Date: 20210215
  Transmission Date: 20210420
  Serious: Yes (Death)
  Sender: FDA-Public Use
  Company Number: DE-B.I. PHARMACEUTICALS,INC./RIDGEFIELD-2021-BI-083437

PATIENT
  Age: 57 Year
  Sex: Male
  Weight: 150 kg

DRUGS (1)
  1. PRADAXA [Suspect]
     Active Substance: DABIGATRAN ETEXILATE MESYLATE
     Indication: HYPERTENSION
     Dosage: 2X1 CAPSULE
     Route: 048

REACTIONS (2)
  - Fatigue [Fatal]
  - Epistaxis [Fatal]

NARRATIVE: CASE EVENT DATE: 20201215
